FAERS Safety Report 21521561 (Version 1)
Quarter: 2022Q4

REPORT INFORMATION
  Report Type: Spontaneous
  Country: US (occurrence: US)
  Receive Date: 20221028
  Receipt Date: 20221028
  Transmission Date: 20230112
  Serious: No
  Sender: FDA-Public Use
  Company Number: US-SA-SAC20221027000044

PATIENT
  Age: 74 Year
  Sex: Male
  Weight: 79.4 kg

DRUGS (5)
  1. LOVENOX [Suspect]
     Active Substance: ENOXAPARIN SODIUM
     Indication: Product used for unknown indication
     Dosage: UNK
     Route: 042
  2. TYVASO [Suspect]
     Active Substance: TREPROSTINIL
     Indication: Pulmonary arterial hypertension
     Dosage: UNK UNK, QID
     Dates: start: 20220921
  3. TYVASO [Suspect]
     Active Substance: TREPROSTINIL
     Dosage: 24 UG (4 BREATHS) QID
     Route: 055
     Dates: start: 202210
  4. TYVASO [Suspect]
     Active Substance: TREPROSTINIL
     Dosage: 18 UG (3 BREATHS) FOUR TIMES A DAY QID
     Route: 055
  5. AMLODIPINE [Concomitant]
     Active Substance: AMLODIPINE BESYLATE

REACTIONS (3)
  - Dizziness postural [Unknown]
  - Diarrhoea [Unknown]
  - Injection site haemorrhage [Unknown]

NARRATIVE: CASE EVENT DATE: 20221012
